FAERS Safety Report 16834390 (Version 1)
Quarter: 2019Q3

REPORT INFORMATION
  Report Type: Spontaneous
  Country: AU (occurrence: AU)
  Receive Date: 20190920
  Receipt Date: 20190920
  Transmission Date: 20191005
  Serious: Yes (Other)
  Sender: FDA-Public Use
  Company Number: AU-BAYER-2019-169496

PATIENT
  Age: 58 Year
  Sex: Male

DRUGS (5)
  1. ASPIRIN. [Concomitant]
     Active Substance: ASPIRIN
  2. METFORMIN [Concomitant]
     Active Substance: METFORMIN HYDROCHLORIDE
  3. LOSARTAN. [Concomitant]
     Active Substance: LOSARTAN
  4. STIVARGA [Suspect]
     Active Substance: REGORAFENIB
     Indication: HEPATOCELLULAR CARCINOMA
     Dosage: DAILY DOSE 160 MG(3WEEKS ON, 1 WEEK OFF)
  5. LIPITOR [Concomitant]
     Active Substance: ATORVASTATIN CALCIUM

REACTIONS (4)
  - Ascites [None]
  - Hepatocellular carcinoma [None]
  - Alpha 1 foetoprotein increased [None]
  - Hypertension [None]
